FAERS Safety Report 11876916 (Version 3)
Quarter: 2016Q1

REPORT INFORMATION
  Report Type: Spontaneous
  Country: US (occurrence: US)
  Receive Date: 20151229
  Receipt Date: 20160217
  Transmission Date: 20160526
  Serious: Yes (Other)
  Sender: FDA-Public Use
  Company Number: US-ALLERGAN-1526192US

PATIENT
  Age: 76 Year
  Sex: Female

DRUGS (7)
  1. PREMARIN [Concomitant]
     Active Substance: ESTROGENS, CONJUGATED
     Indication: PRODUCT USED FOR UNKNOWN INDICATION
     Dosage: UNK UNK, BI-WEEKLY
  2. ALPHAGAN P [Suspect]
     Active Substance: BRIMONIDINE TARTRATE
     Dosage: UNK, BID
     Route: 047
  3. ALPHAGAN P [Suspect]
     Active Substance: BRIMONIDINE TARTRATE
     Dosage: UNK, TID
     Route: 047
     Dates: start: 20151210
  4. VALIUM [Concomitant]
     Active Substance: DIAZEPAM
     Indication: MUSCLE SPASMS
     Dosage: UNK UNK, PRN
  5. XALATAN [Concomitant]
     Active Substance: LATANOPROST
     Indication: INTRAOCULAR PRESSURE INCREASED
     Dosage: UNK UNK, QD
  6. PRESERVISION LUTEIN [Concomitant]
     Active Substance: MINERALS\VITAMINS
     Indication: INTRAOCULAR PRESSURE INCREASED
     Dosage: UNK UNK, BID
  7. ALPHAGAN P [Suspect]
     Active Substance: BRIMONIDINE TARTRATE
     Indication: INTRAOCULAR PRESSURE INCREASED
     Dosage: UNK, BID
     Route: 047
     Dates: start: 2005

REACTIONS (12)
  - Vaginal fistula [Recovered/Resolved]
  - Depressed mood [Not Recovered/Not Resolved]
  - Ear infection [Unknown]
  - Diverticulitis [Recovered/Resolved]
  - Ovarian mass [Recovered/Resolved]
  - Abscess jaw [Recovered/Resolved]
  - Incision site infection [Recovered/Resolved]
  - Tooth extraction [Recovered/Resolved]
  - Pruritus generalised [Recovered/Resolved]
  - Optic disc haemorrhage [Recovered/Resolved]
  - Meniscus injury [Recovered/Resolved]
  - Headache [Recovered/Resolved]

NARRATIVE: CASE EVENT DATE: 2011
